FAERS Safety Report 7211941-4 (Version None)
Quarter: 2011Q1

REPORT INFORMATION
  Report Type: 
  Country: None (occurrence: None)
  Receive Date: 20110106
  Receipt Date: 20101227
  Transmission Date: 20110831
  Serious: No
  Sender: FDA-Public Use
  Company Number: US-BIOGENIDEC-2011BI000312

PATIENT
  Sex: Female

DRUGS (1)
  1. TYSABRI [Suspect]
     Indication: MULTIPLE SCLEROSIS
     Route: 042
     Dates: start: 20100512

REACTIONS (10)
  - CONSTIPATION [None]
  - GAIT DISTURBANCE [None]
  - THYROID DISORDER [None]
  - BLOOD CHOLESTEROL INCREASED [None]
  - ASTHENIA [None]
  - VERTIGO [None]
  - MEMORY IMPAIRMENT [None]
  - TOOTH EXTRACTION [None]
  - RASH PRURITIC [None]
  - WEIGHT INCREASED [None]
